FAERS Safety Report 24991084 (Version 1)
Quarter: 2025Q1

REPORT INFORMATION
  Report Type: Spontaneous
  Country: PL (occurrence: PL)
  Receive Date: 20250220
  Receipt Date: 20250220
  Transmission Date: 20250409
  Serious: Yes (Death, Other)
  Sender: VELOXIS PHARMACEUTICALS
  Company Number: PL-VELOXIS PHARMACEUTICALS, INC.-2025-VEL-00065

PATIENT
  Age: 36 Year
  Sex: Male

DRUGS (3)
  1. TACROLIMUS [Suspect]
     Active Substance: TACROLIMUS
     Indication: Bone marrow transplant
  2. MYCOPHENOLATE MOFETIL [Suspect]
     Active Substance: MYCOPHENOLATE MOFETIL
     Indication: Bone marrow transplant
  3. CYCLOPHOSPHAMIDE [Suspect]
     Active Substance: CYCLOPHOSPHAMIDE
     Indication: Bone marrow transplant

REACTIONS (6)
  - Multiple organ dysfunction syndrome [Fatal]
  - Cytokine release syndrome [Unknown]
  - Epidermolysis [Unknown]
  - Venoocclusive liver disease [Unknown]
  - Acute kidney injury [Unknown]
  - Off label use [Unknown]
